FAERS Safety Report 5642109-0 (Version None)
Quarter: 2008Q1

REPORT INFORMATION
  Report Type: 
  Country: None (occurrence: None)
  Receive Date: 20080227
  Receipt Date: 20080219
  Transmission Date: 20080703
  Serious: Yes (Other)
  Sender: FDA-Public Use
  Company Number: NL-MERCK-0503NLD00034

PATIENT
  Age: 51 Year
  Sex: Male

DRUGS (1)
  1. FOSAMAX [Suspect]
     Route: 048
     Dates: start: 20040831, end: 20041011

REACTIONS (5)
  - BONE PAIN [None]
  - DEPRESSION [None]
  - FATIGUE [None]
  - HYPERSENSITIVITY [None]
  - OEDEMA PERIPHERAL [None]
